FAERS Safety Report 5676718-X (Version None)
Quarter: 2008Q2

REPORT INFORMATION
  Report Type: 
  Country: None (occurrence: None)
  Receive Date: 20080311
  Receipt Date: 20071214
  Transmission Date: 20081010
  Serious: No
  Sender: FDA-Public Use
  Company Number: 002#2#2007-00391

PATIENT
  Age: 69 Year
  Sex: Female

DRUGS (10)
  1. NEUPRO [Suspect]
     Dosage: 2MG/24H,1 IN 1 D,TRANSDERMAL; 4MG/24H,1 IN 1 D,TRANSDERMAL
     Route: 062
     Dates: start: 20070701, end: 20070801
  2. NEUPRO [Suspect]
     Dosage: 2MG/24H,1 IN 1 D,TRANSDERMAL; 4MG/24H,1 IN 1 D,TRANSDERMAL
     Route: 062
     Dates: start: 20070801
  3. NEUPRO [Suspect]
  4. STALEVO 100 [Concomitant]
  5. SINEMET [Concomitant]
  6. MOBIC [Concomitant]
  7. CO Q-10 [Concomitant]
  8. VITAMINS [Concomitant]
  9. FISH OIL [Concomitant]
  10. CA [Concomitant]

REACTIONS (2)
  - APPLICATION SITE ERYTHEMA [None]
  - PHARMACEUTICAL PRODUCT COMPLAINT [None]
